FAERS Safety Report 13363029 (Version 1)
Quarter: 2017Q1

REPORT INFORMATION
  Report Type: Spontaneous
  Country: US (occurrence: US)
  Receive Date: 20170322
  Receipt Date: 20170322
  Transmission Date: 20170429
  Serious: Yes (Other)
  Sender: FDA-Public Use
  Company Number: None

PATIENT
  Age: 61 Year
  Sex: Male
  Weight: 81 kg

DRUGS (2)
  1. MORPHINE SULPHATE ER 30 MG [Suspect]
     Active Substance: MORPHINE SULFATE
     Indication: PAIN
     Dosage: ?          QUANTITY:2 CAPSULE(S);?
     Route: 048
  2. RANITIDINE. [Concomitant]
     Active Substance: RANITIDINE

REACTIONS (5)
  - Feeling jittery [None]
  - Middle insomnia [None]
  - Reaction to drug excipients [None]
  - Hypoaesthesia oral [None]
  - Abdominal pain upper [None]

NARRATIVE: CASE EVENT DATE: 20170209
